FAERS Safety Report 8524484-2 (Version None)
Quarter: 2012Q3

REPORT INFORMATION
  Report Type: 
  Country: None (occurrence: None)
  Receive Date: 20120720
  Receipt Date: 20120419
  Transmission Date: 20120928
  Serious: No
  Sender: FDA-Public Use
  Company Number: US-MYLANLABS-2012S1008116

PATIENT
  Age: 54 Year
  Sex: Female

DRUGS (1)
  1. BUSPIRONE HCL [Suspect]
     Indication: INSOMNIA
     Route: 048
     Dates: start: 20110401

REACTIONS (3)
  - AMNESIA [None]
  - NIGHTMARE [None]
  - OVERDOSE [None]
